FAERS Safety Report 9498326 (Version 1)
Quarter: 2013Q3

REPORT INFORMATION
  Report Type: Spontaneous
  Country: US (occurrence: US)
  Receive Date: 20130904
  Receipt Date: 20130904
  Transmission Date: 20140515
  Serious: Yes (Death)
  Sender: FDA-Public Use
  Company Number: US-PFIZER INC-2013252063

PATIENT
  Age: 83 Year
  Sex: Female
  Weight: 69.85 kg

DRUGS (3)
  1. CHILDREN^S MOTRIN [Suspect]
     Indication: PYREXIA
     Dosage: 2 FULL DROPPERS EVERY 4 HOURS
     Route: 048
  2. CHILDRENS BENADRYL [Concomitant]
     Indication: MULTIPLE ALLERGIES
     Dosage: UNK
     Route: 048
  3. CHILDRENS BENADRYL [Concomitant]
     Indication: ORAL MUCOSAL BLISTERING

REACTIONS (2)
  - Bone cancer [Fatal]
  - Off label use [Unknown]
